FAERS Safety Report 6985358-1 (Version None)
Quarter: 2010Q3

REPORT INFORMATION
  Report Type: 
  Country: None (occurrence: None)
  Receive Date: 20100915
  Receipt Date: 20100903
  Transmission Date: 20110219
  Serious: No
  Sender: FDA-Public Use
  Company Number: US-PFIZER INC-2010087573

PATIENT
  Sex: Male
  Weight: 68 kg

DRUGS (7)
  1. LYRICA [Suspect]
     Indication: NEUROPATHY PERIPHERAL
     Dosage: 300 MG ONCE DAILY
     Route: 048
     Dates: start: 20100608
  2. INSULIN [Concomitant]
     Indication: DIABETES MELLITUS
     Dosage: UNK
  3. ACETAMINOPHEN AND HYDROCODONE BITARTRATE [Concomitant]
     Indication: PAIN
     Dosage: 10/325 MG, UNK
  4. PAROXETINE [Concomitant]
     Dosage: UNK
  5. HYDROXYZINE [Concomitant]
     Dosage: UNK
  6. TRAZODONE [Concomitant]
     Dosage: UNK
  7. LISINOPRIL [Concomitant]
     Indication: RENAL DISORDER
     Dosage: UNK

REACTIONS (4)
  - ANXIETY [None]
  - INSOMNIA [None]
  - NERVOUSNESS [None]
  - OEDEMA PERIPHERAL [None]
